FAERS Safety Report 25249798 (Version 3)
Quarter: 2025Q4

REPORT INFORMATION
  Report Type: Report from Study
  Country: EG (occurrence: EG)
  Receive Date: 20250429
  Receipt Date: 20251028
  Transmission Date: 20260118
  Serious: Yes (Other)
  Sender: BIOGEN
  Company Number: EG-BIOGEN-2025BI01309082

PATIENT
  Sex: Female
  Weight: 2 kg

DRUGS (4)
  1. TYSABRI [Suspect]
     Active Substance: NATALIZUMAB
     Indication: Maternal exposure timing unspecified
     Route: 064
     Dates: start: 202306, end: 202404
  2. TYSABRI [Suspect]
     Active Substance: NATALIZUMAB
     Route: 063
     Dates: start: 202404
  3. IRON [Concomitant]
     Active Substance: IRON
     Indication: Anaemia of pregnancy
     Route: 064
  4. CALCIUM [Concomitant]
     Active Substance: CALCIUM
     Indication: Supplementation therapy
     Route: 064

REACTIONS (3)
  - Low birth weight baby [Unknown]
  - Exposure via breast milk [Unknown]
  - Foetal exposure during pregnancy [Recovered/Resolved]

NARRATIVE: CASE EVENT DATE: 20241215
